FAERS Safety Report 22761806 (Version 5)
Quarter: 2024Q4

REPORT INFORMATION
  Report Type: Report from Study
  Country: US (occurrence: US)
  Receive Date: 20230728
  Receipt Date: 20241118
  Transmission Date: 20250114
  Serious: Yes (Death, Hospitalization, Other)
  Sender: GENMAB
  Company Number: US-GENMAB-2023-01304

PATIENT
  Age: 47 Year
  Sex: Female

DRUGS (4)
  1. EPKINLY [Suspect]
     Active Substance: EPCORITAMAB-BYSP
     Indication: Diffuse large B-cell lymphoma
     Dosage: 48 MILLIGRAM, WEEKLY
     Route: 058
     Dates: start: 20230615
  2. EPKINLY [Suspect]
     Active Substance: EPCORITAMAB-BYSP
     Dosage: UNK
     Route: 058
     Dates: start: 20230622
  3. EPKINLY [Suspect]
     Active Substance: EPCORITAMAB-BYSP
     Dosage: 48 MILLIGRAM (OTHER FREQUENCY)
     Route: 058
     Dates: start: 20230815
  4. EPKINLY [Suspect]
     Active Substance: EPCORITAMAB-BYSP
     Dosage: UNK (FULL DOSE)
     Route: 065
     Dates: start: 20230908, end: 20230908

REACTIONS (6)
  - Death [Fatal]
  - Oral infection [Unknown]
  - Diffuse large B-cell lymphoma [Unknown]
  - Hospitalisation [Unknown]
  - Product dose omission in error [Unknown]
  - Therapy non-responder [Recovered/Resolved]

NARRATIVE: CASE EVENT DATE: 20230629
